FAERS Safety Report 8792322 (Version 1)
Quarter: 2012Q4

REPORT INFORMATION
  Report Type: Report from Study
  Country: HU (occurrence: HU)
  Receive Date: 20120917
  Receipt Date: 20120917
  Transmission Date: 20130627
  Serious: Yes (Hospitalization)
  Sender: FDA-Public Use
  Company Number: HU-ROCHE-1124329

PATIENT
  Age: 56 Year
  Sex: Female

DRUGS (3)
  1. XELODA [Suspect]
     Indication: HEPATIC NEOPLASM MALIGNANT
     Route: 048
     Dates: start: 20080623, end: 200809
  2. XELODA [Suspect]
     Indication: METASTASES TO CENTRAL NERVOUS SYSTEM
  3. TYVERB [Concomitant]
     Route: 065

REACTIONS (1)
  - Metastases to central nervous system [Unknown]
